FAERS Safety Report 5715306-3 (Version None)
Quarter: 2008Q2

REPORT INFORMATION
  Report Type: 
  Country: None (occurrence: None)
  Receive Date: 20080423
  Receipt Date: 20080416
  Transmission Date: 20081010
  Serious: Yes (Hospitalization)
  Sender: FDA-Public Use
  Company Number: JP-PFIZER INC-2008030498

PATIENT
  Sex: Male
  Weight: 72.5 kg

DRUGS (7)
  1. NORVASC [Suspect]
     Route: 048
     Dates: start: 20050715, end: 20080304
  2. ACTOS [Suspect]
     Route: 048
  3. BEZATOL - SLOW RELEASE [Suspect]
     Route: 048
  4. EUGLUCON [Concomitant]
     Dosage: DAILY DOSE:2.5MG
     Route: 048
  5. URSO 250 [Concomitant]
     Dosage: DAILY DOSE:200MG
     Route: 048
  6. PL [Concomitant]
     Dates: start: 20080225, end: 20080228
  7. GLYCYRRHIZIN/GLYCINE/L-CYSTEINE HYDROCHLORIDE [Concomitant]
     Route: 042
     Dates: start: 20050701

REACTIONS (1)
  - ATRIOVENTRICULAR BLOCK [None]
